FAERS Safety Report 8185003-6 (Version None)
Quarter: 2012Q1

REPORT INFORMATION
  Report Type: 
  Country: None (occurrence: None)
  Receive Date: 20120208
  Receipt Date: 20111014
  Transmission Date: 20120608
  Serious: Yes (Other)
  Sender: FDA-Public Use
  Company Number: AUR-APL-2011-05561

PATIENT
  Age: 62 Year
  Sex: Female
  Weight: 79.36 kg

DRUGS (2)
  1. VENLAFAXINE [Suspect]
     Indication: DEPRESSION
     Dosage: 150 MG (150 MG, 1 IN 1 D), ORAL
     Route: 048
     Dates: start: 20110907, end: 20110910
  2. AMBIEN [Concomitant]

REACTIONS (1)
  - DRUG WITHDRAWAL SYNDROME [None]
